FAERS Safety Report 9731182 (Version 2)
Quarter: 2022Q1

REPORT INFORMATION
  Report Type: Report from Study
  Country: US (occurrence: US)
  Receive Date: 20131203
  Receipt Date: 20220114
  Transmission Date: 20220424
  Serious: Yes (Hospitalization)
  Sender: FDA-Public Use
  Company Number: US-PFIZER INC-2013334647

PATIENT
  Age: 61 Year
  Sex: Male
  Weight: 86.9 kg

DRUGS (1)
  1. SUNITINIB MALATE [Suspect]
     Active Substance: SUNITINIB MALATE
     Indication: Thymoma
     Dosage: 50 MG, 1X/DAY ON DAYS 1-28
     Route: 048
     Dates: start: 20130813

REACTIONS (5)
  - Pleural effusion [Not Recovered/Not Resolved]
  - Pericardial effusion [Not Recovered/Not Resolved]
  - Dyspnoea [Not Recovered/Not Resolved]
  - Oedema peripheral [Not Recovered/Not Resolved]
  - Localised oedema [Not Recovered/Not Resolved]

NARRATIVE: CASE EVENT DATE: 20131031
